FAERS Safety Report 9498194 (Version 2)
Quarter: 2014Q2

REPORT INFORMATION
  Report Type: Spontaneous
  Country: US (occurrence: US)
  Receive Date: 20130904
  Receipt Date: 20140528
  Transmission Date: 20141212
  Serious: Yes (Hospitalization)
  Sender: FDA-Public Use
  Company Number: US-BAYER-2013-105741

PATIENT
  Age: 37 Year
  Sex: Female
  Weight: 58.96 kg

DRUGS (2)
  1. MIRENA [Suspect]
     Indication: CONTRACEPTION
     Dosage: 20 MCG/24HR, CONT
     Route: 015
     Dates: start: 20070706, end: 20070921
  2. MIRENA [Suspect]
     Indication: CONTRACEPTION
     Dosage: 20 MG, CONT
     Dates: start: 200208, end: 20070706

REACTIONS (6)
  - Uterine perforation [None]
  - Abdominal pain lower [None]
  - Injury [None]
  - Medical device pain [None]
  - Infection [None]
  - Device issue [None]
